FAERS Safety Report 20603457 (Version 2)
Quarter: 2022Q1

REPORT INFORMATION
  Report Type: Spontaneous
  Country: IT (occurrence: None)
  Receive Date: 20220316
  Receipt Date: 20220318
  Transmission Date: 20220424
  Serious: Yes (Hospitalization, Other)
  Sender: FDA-Public Use
  Company Number: 2022A049188

PATIENT
  Age: 88 Year
  Sex: Female

DRUGS (8)
  1. ESOMEPRAZOLE MAGNESIUM [Interacting]
     Active Substance: ESOMEPRAZOLE MAGNESIUM
     Indication: Product used for unknown indication
     Route: 048
     Dates: start: 20210801, end: 20211124
  2. ASPIRIN [Interacting]
     Active Substance: ASPIRIN
     Indication: Thrombosis prophylaxis
     Dosage: 1 DF, QD
     Route: 048
     Dates: start: 20210827, end: 20211124
  3. XARELTO [Interacting]
     Active Substance: RIVAROXABAN
     Indication: Cardiac failure
     Route: 048
     Dates: start: 20210501, end: 20211123
  4. CLOPIDOGREL BISULFATE [Interacting]
     Active Substance: CLOPIDOGREL BISULFATE
     Indication: Thrombosis prophylaxis
     Route: 048
     Dates: start: 20210827, end: 20211124
  5. VALSARTAN [Concomitant]
     Active Substance: VALSARTAN
     Indication: Product used for unknown indication
     Dosage: 1 DOSAGE FORM1.0DF UNKNOWN
     Route: 048
     Dates: end: 20211123
  6. BISOPROLOL [Concomitant]
     Active Substance: BISOPROLOL
     Indication: Atrial fibrillation
     Dosage: 1.0DF UNKNOWN
     Route: 048
     Dates: start: 20210501, end: 20211124
  7. AMIODARONE HYDROCHLORIDE [Concomitant]
     Active Substance: AMIODARONE HYDROCHLORIDE
     Indication: Atrial fibrillation
     Dosage: 1.0DF UNKNOWN
     Route: 048
     Dates: end: 20211124
  8. FUROSEMIDE [Concomitant]
     Active Substance: FUROSEMIDE
     Indication: Product used for unknown indication
     Dosage: 2.0DF UNKNOWN
     Route: 048
     Dates: end: 20211124

REACTIONS (2)
  - Acute myocardial infarction [Recovered/Resolved]
  - Drug interaction [Unknown]

NARRATIVE: CASE EVENT DATE: 20211119
